FAERS Safety Report 14190715 (Version 1)
Quarter: 2017Q4

REPORT INFORMATION
  Report Type: Spontaneous
  Country: US (occurrence: US)
  Receive Date: 20171114
  Receipt Date: 20171114
  Transmission Date: 20180321
  Serious: No
  Sender: FDA-Public Use
  Company Number: None

PATIENT
  Age: 74 Year
  Sex: Female
  Weight: 55.8 kg

DRUGS (12)
  1. RANITIDINE. [Concomitant]
     Active Substance: RANITIDINE
  2. BEVESPI AEROSPHERE [Suspect]
     Active Substance: FORMOTEROL FUMARATE\GLYCOPYRROLATE
     Indication: CHRONIC OBSTRUCTIVE PULMONARY DISEASE
     Dosage: ?          OTHER STRENGTH:MCG;?
     Route: 055
     Dates: start: 20171016, end: 20171113
  3. BEVESPI AEROSPHERE [Suspect]
     Active Substance: FORMOTEROL FUMARATE\GLYCOPYRROLATE
     Indication: BRONCHITIS CHRONIC
     Dosage: ?          OTHER STRENGTH:MCG;?
     Route: 055
     Dates: start: 20171016, end: 20171113
  4. COQ10 [Concomitant]
     Active Substance: UBIDECARENONE
  5. HOLY BASIL [Concomitant]
  6. VITAMIN B12 [Concomitant]
     Active Substance: CYANOCOBALAMIN
  7. LOSARTAN. [Concomitant]
     Active Substance: LOSARTAN
  8. SYMBICORT [Concomitant]
     Active Substance: BUDESONIDE\FORMOTEROL FUMARATE DIHYDRATE
  9. LEVOTHYROXINE. [Concomitant]
     Active Substance: LEVOTHYROXINE
  10. MULTIVITAMIN [Concomitant]
     Active Substance: VITAMINS
  11. ASA [Concomitant]
     Active Substance: ASPIRIN
  12. SOIRIVA [Concomitant]

REACTIONS (12)
  - Cough [None]
  - Dyspnoea [None]
  - Gait disturbance [None]
  - Wheezing [None]
  - Sleep disorder [None]
  - Lung disorder [None]
  - Mobility decreased [None]
  - Urine output decreased [None]
  - Respiratory distress [None]
  - Weight decreased [None]
  - Headache [None]
  - Decreased appetite [None]

NARRATIVE: CASE EVENT DATE: 20171113
